FAERS Safety Report 10105223 (Version 2)
Quarter: 2014Q2

REPORT INFORMATION
  Report Type: Other
  Country: US (occurrence: US)
  Receive Date: 20140424
  Receipt Date: 20140613
  Transmission Date: 20141212
  Serious: Yes (Other)
  Sender: FDA-Public Use
  Company Number: US-GSKPPD-2014GSK001192

PATIENT
  Sex: Female
  Weight: 65.38 kg

DRUGS (4)
  1. AVANDIA [Suspect]
     Indication: DIABETES MELLITUS
     Route: 048
     Dates: start: 2006, end: 2008
  2. HYDRALAZINE/HYDROCHLOROTHIAZIDE [Concomitant]
     Dosage: 25/25 MG
  3. METOPROLOL [Concomitant]
  4. ASPIRIN [Concomitant]

REACTIONS (1)
  - Myocardial ischaemia [None]
